FAERS Safety Report 16128975 (Version 1)
Quarter: 2019Q1

REPORT INFORMATION
  Report Type: Spontaneous
  Country: ES (occurrence: ES)
  Receive Date: 20190328
  Receipt Date: 20190328
  Transmission Date: 20190418
  Serious: Yes (Hospitalization, Other)
  Sender: FDA-Public Use
  Company Number: ES-JNJFOC-20190328189

PATIENT
  Sex: Female

DRUGS (1)
  1. IBRUTINIB [Suspect]
     Active Substance: IBRUTINIB
     Indication: WALDENSTROM^S MACROGLOBULINAEMIA
     Route: 048
     Dates: start: 20160502, end: 20180602

REACTIONS (7)
  - Back pain [Unknown]
  - Infection [Unknown]
  - Arthritis [Unknown]
  - Haematuria [Unknown]
  - Rectal haemorrhage [Unknown]
  - Neck pain [Unknown]
  - Hypertension [Unknown]
